FAERS Safety Report 21286663 (Version 1)
Quarter: 2022Q3

REPORT INFORMATION
  Report Type: Spontaneous
  Country: US (occurrence: None)
  Receive Date: 20220902
  Receipt Date: 20220902
  Transmission Date: 20221027
  Serious: No
  Sender: FDA-Public Use
  Company Number: None

PATIENT
  Sex: Female

DRUGS (13)
  1. XELJANZ [Suspect]
     Active Substance: TOFACITINIB CITRATE
     Indication: Rheumatoid arthritis
     Dosage: FREQUENCY : TWICE A DAY;?
     Route: 048
     Dates: start: 20220511
  2. ATORVASTATIN [Concomitant]
     Active Substance: ATORVASTATIN
  3. BUPROPN HCL TAB XL [Concomitant]
  4. GABAPENTIN [Concomitant]
     Active Substance: GABAPENTIN
  5. NAPROXEN TAB [Concomitant]
  6. OXYCOD/APAP TAB [Concomitant]
  7. PERCOCET TAB [Concomitant]
  8. PREDNISONE [Concomitant]
     Active Substance: PREDNISONE
  9. PRILOSEC OTC TAB [Concomitant]
  10. REQUIP TAB [Concomitant]
  11. ROPINIROLE TAB [Concomitant]
  12. SERTRALINE HYDROCHLORIDE [Concomitant]
     Active Substance: SERTRALINE HYDROCHLORIDE
  13. TOPAMAX TAB [Concomitant]

REACTIONS (2)
  - Surgery [None]
  - Therapy interrupted [None]
